FAERS Safety Report 13592856 (Version 2)
Quarter: 2017Q3

REPORT INFORMATION
  Report Type: Spontaneous
  Country: US (occurrence: US)
  Receive Date: 20170530
  Receipt Date: 20170712
  Transmission Date: 20171127
  Serious: No
  Sender: FDA-Public Use
  Company Number: US-TAKEDA-2017MPI004817

PATIENT
  Sex: Male
  Weight: 77.98 kg

DRUGS (1)
  1. NINLARO [Suspect]
     Active Substance: IXAZOMIB
     Indication: PLASMA CELL MYELOMA
     Dosage: UNK
     Route: 048
     Dates: start: 20170509

REACTIONS (6)
  - Fatigue [Unknown]
  - Platelet count decreased [Unknown]
  - Decreased appetite [Unknown]
  - Nausea [Recovering/Resolving]
  - White blood cell count decreased [Unknown]
  - Neuropathy peripheral [Unknown]
